FAERS Safety Report 20164429 (Version 1)
Quarter: 2021Q4

REPORT INFORMATION
  Report Type: Report from Study
  Country: AU (occurrence: AU)
  Receive Date: 20211209
  Receipt Date: 20211209
  Transmission Date: 20220303
  Serious: Yes (Other)
  Sender: FDA-Public Use
  Company Number: AU-APELLIS-01061

PATIENT
  Age: 76 Year
  Sex: Male

DRUGS (1)
  1. PEGCETACOPLAN [Suspect]
     Active Substance: PEGCETACOPLAN
     Indication: Paroxysmal nocturnal haemoglobinuria
     Dosage: TIME INTERVAL: 0.33333333 WEEKS
     Route: 058
     Dates: start: 202010

REACTIONS (3)
  - Immune thrombocytopenia [Unknown]
  - Lipoma [Unknown]
  - Haematoma [Unknown]

NARRATIVE: CASE EVENT DATE: 20201001
